FAERS Safety Report 7647373-4 (Version None)
Quarter: 2011Q3

REPORT INFORMATION
  Report Type: 
  Country: None (occurrence: None)
  Receive Date: 20110801
  Receipt Date: 20110721
  Transmission Date: 20111222
  Serious: Yes (Life-Threatening)
  Sender: FDA-Public Use
  Company Number: US-ROCHE-793037

PATIENT
  Age: 79 Year
  Sex: Female

DRUGS (3)
  1. CARBOPLATIN [Suspect]
     Dosage: AUC 6 IP ON DAY 1. LAST DOSE:MARCH 2011
     Route: 033
     Dates: start: 20101104
  2. PACLITAXEL [Suspect]
     Dosage: ON DAYS 1, 8 AND 15. LAST DOSE:MARCH 2011.
     Route: 042
     Dates: start: 20101104
  3. BEVACIZUMAB [Suspect]
     Dosage: OVER 30-90 MINTS ON DAY 1, LAST DOSE:16 JUNE 2011 (CYCLE 11, DAY 1)
     Route: 042
     Dates: start: 20101104

REACTIONS (2)
  - ATAXIA [None]
  - CEREBELLAR SYNDROME [None]
